FAERS Safety Report 4435960-6 (Version None)
Quarter: 2004Q3

REPORT INFORMATION
  Report Type: 
  Country: None (occurrence: None)
  Receive Date: 20040826
  Receipt Date: 20040819
  Transmission Date: 20050211
  Serious: Yes (Life-Threatening, Hospitalization, Other)
  Sender: FDA-Public Use
  Company Number: 200419283BWH

PATIENT
  Age: 52 Year
  Sex: Female
  Weight: 99.7913 kg

DRUGS (5)
  1. AVELOX [Suspect]
     Indication: CELLULITIS
     Dosage: 400 MG, TOTAL DAILY, INTRAVENOUS
     Route: 042
  2. AVELOX [Suspect]
     Indication: THROMBOPHLEBITIS
     Dosage: 400 MG, TOTAL DAILY, INTRAVENOUS
     Route: 042
  3. LOPRESSOR [Concomitant]
  4. COUMADIN [Concomitant]
  5. URSODIOL [Concomitant]

REACTIONS (8)
  - BLOOD ALKALINE PHOSPHATASE INCREASED [None]
  - BLOOD BILIRUBIN INCREASED [None]
  - BLOOD MAGNESIUM DECREASED [None]
  - BLOOD POTASSIUM DECREASED [None]
  - CARDIAC ARREST [None]
  - CONVULSION [None]
  - TORSADE DE POINTES [None]
  - VENTRICULAR FIBRILLATION [None]
